FAERS Safety Report 9562000 (Version 1)
Quarter: 2013Q3

REPORT INFORMATION
  Report Type: Spontaneous
  Country: US (occurrence: US)
  Receive Date: 20130927
  Receipt Date: 20130927
  Transmission Date: 20140515
  Serious: No
  Sender: FDA-Public Use
  Company Number: US-JNJFOC-20130909920

PATIENT
  Age: 66 Year
  Sex: Female
  Weight: 72.58 kg

DRUGS (9)
  1. DURAGESIC [Suspect]
     Indication: BACK PAIN
     Route: 062
  2. DURAGESIC [Suspect]
     Indication: BACK PAIN
     Route: 062
  3. AMITRIPTYLINE [Concomitant]
     Indication: NERVOUS SYSTEM DISORDER
     Dosage: AT NIGHT
     Route: 048
  4. DILANTIN [Concomitant]
     Indication: CONVULSION
     Route: 048
     Dates: start: 1989
  5. DILANTIN [Concomitant]
     Indication: CONVULSION
     Dosage: IN THE AFTERNOON
     Route: 048
     Dates: start: 1989
  6. EVISTA [Concomitant]
     Indication: BONE DISORDER
     Route: 048
     Dates: start: 1989
  7. PREDNISONE [Concomitant]
     Indication: LUNG DISORDER
     Dosage: IN THE MORNING
     Route: 048
  8. TYLENOL 3 [Concomitant]
     Indication: PAIN
     Dosage: AS NEEDED.
     Route: 065
  9. SECONAL [Concomitant]
     Indication: MIGRAINE
     Dosage: DAILY
     Route: 048
     Dates: start: 1989

REACTIONS (6)
  - Poor quality drug administered [Unknown]
  - Drug prescribing error [Unknown]
  - Pain [Not Recovered/Not Resolved]
  - Product quality issue [Unknown]
  - Product physical issue [Unknown]
  - Incorrect dose administered [Unknown]
